FAERS Safety Report 7935641-8 (Version None)
Quarter: 2011Q4

REPORT INFORMATION
  Report Type: 
  Country: None (occurrence: None)
  Receive Date: 20111118
  Receipt Date: 20111114
  Transmission Date: 20120403
  Serious: Yes (Life-Threatening)
  Sender: FDA-Public Use
  Company Number: JP-2011-11775

PATIENT
  Age: 70 Year
  Sex: Female
  Weight: 69 kg

DRUGS (6)
  1. PLETAL [Suspect]
     Indication: CEREBRAL INFARCTION
     Dosage: 100 MG MILLIGRAM(S), BID, ORAL
     Route: 048
     Dates: start: 20110927, end: 20111028
  2. METGLUCO (METFORMIN HYDROCHLORIDE) TABLET [Concomitant]
  3. RISPERIDONE [Concomitant]
  4. DIOVAN [Concomitant]
  5. LIPITOR [Concomitant]
  6. PLAVIX [Suspect]
     Indication: CEREBRAL INFARCTION
     Dosage: 75 MG MILLIGRAM(S), QD, ORAL
     Route: 048
     Dates: start: 20110927, end: 20111024

REACTIONS (2)
  - FEBRILE NEUTROPENIA [None]
  - AGRANULOCYTOSIS [None]
